FAERS Safety Report 8998073 (Version 1)
Quarter: 2013Q1

REPORT INFORMATION
  Report Type: Spontaneous
  Country: IT (occurrence: IT)
  Receive Date: 20130104
  Receipt Date: 20130104
  Transmission Date: 20140127
  Serious: Yes (Other)
  Sender: FDA-Public Use
  Company Number: IT-TEVA-378791USA

PATIENT
  Sex: 0

DRUGS (5)
  1. TREANDA [Suspect]
     Indication: PLASMA CELL MYELOMA
     Dosage: CYCLIC
     Route: 042
  2. BORTEZOMIB [Suspect]
     Indication: PLASMA CELL MYELOMA
     Dosage: CYCLIC
  3. DEXAMETHASONE [Suspect]
     Indication: PLASMA CELL MYELOMA
     Dosage: UNKNOWN/D
  4. ACICLOVIR [Concomitant]
     Indication: PROPHYLAXIS
  5. TRIMETHOPRIM SULFAMETHOXAZOLE [Concomitant]
     Indication: ANTIBIOTIC PROPHYLAXIS

REACTIONS (1)
  - Hepatotoxicity [Unknown]
